FAERS Safety Report 5875164-3 (Version None)
Quarter: 2008Q3

REPORT INFORMATION
  Report Type: 
  Country: None (occurrence: None)
  Receive Date: 20080909
  Receipt Date: 20080828
  Transmission Date: 20090109
  Serious: Yes (Hospitalization, Other)
  Sender: FDA-Public Use
  Company Number: FR-JNJFOC-20080706380

PATIENT
  Age: 38 Year
  Sex: Female
  Weight: 36 kg

DRUGS (13)
  1. REMICADE [Suspect]
     Route: 042
  2. REMICADE [Suspect]
     Dosage: REINITIATED
     Route: 042
  3. REMICADE [Suspect]
     Route: 042
  4. REMICADE [Suspect]
     Indication: CROHN'S DISEASE
     Dosage: FOR 4 YEARS
     Route: 042
  5. TERCIAN [Concomitant]
     Indication: DEPRESSION
     Dosage: 20 DROPS DAILY
     Route: 048
  6. EFFEXOR [Concomitant]
     Indication: DEPRESSION
  7. IMUREL [Concomitant]
     Indication: CROHN'S DISEASE
  8. PREDNISOLONE [Concomitant]
  9. PREDNISOLONE [Concomitant]
     Indication: CROHN'S DISEASE
  10. CALCIT D3 [Concomitant]
     Indication: MALNUTRITION
  11. TARDYFERON [Concomitant]
     Indication: ANAEMIA
     Dosage: 2 DOSES
  12. IMODIUM [Concomitant]
     Indication: DIARRHOEA
  13. TEMESTA [Concomitant]
     Indication: ANXIETY

REACTIONS (8)
  - ANAEMIA [None]
  - ANAL ABSCESS [None]
  - ANXIETY [None]
  - DIARRHOEA [None]
  - EXTRASYSTOLES [None]
  - MALNUTRITION [None]
  - PALPITATIONS [None]
  - STAPHYLOCOCCAL INFECTION [None]
